FAERS Safety Report 7189974-6 (Version None)
Quarter: 2010Q4

REPORT INFORMATION
  Report Type: 
  Country: None (occurrence: None)
  Receive Date: 20101223
  Receipt Date: 20101213
  Transmission Date: 20110411
  Serious: Yes (Other)
  Sender: FDA-Public Use
  Company Number: DE-PFIZER INC-2010177299

PATIENT
  Age: 37 Year
  Sex: Female

DRUGS (3)
  1. ATARAX [Suspect]
     Dosage: 1000 MG
     Route: 048
  2. VENLAFAXINE HCL [Suspect]
     Dosage: 37.5 MG, UNK
     Route: 048
  3. SERESTA [Suspect]
     Route: 048

REACTIONS (5)
  - MYDRIASIS [None]
  - OVERDOSE [None]
  - SOMNOLENCE [None]
  - SUICIDE ATTEMPT [None]
  - TREMOR [None]
